FAERS Safety Report 23550972 (Version 1)
Quarter: 2024Q1

REPORT INFORMATION
  Report Type: Spontaneous
  Country: US (occurrence: US)
  Receive Date: 20240221
  Receipt Date: 20240221
  Transmission Date: 20240410
  Serious: No
  Sender: FDA-Public Use
  Company Number: US-AMGEN-USASP2024034565

PATIENT
  Age: 73 Year
  Sex: Female

DRUGS (1)
  1. PROLIA [Suspect]
     Active Substance: DENOSUMAB
     Indication: Product used for unknown indication
     Dosage: UNK
     Route: 065
     Dates: start: 20210831

REACTIONS (3)
  - Humerus fracture [Recovering/Resolving]
  - Fall [Unknown]
  - Familial hypocalciuric hypercalcaemia [Unknown]

NARRATIVE: CASE EVENT DATE: 20230725
